FAERS Safety Report 19220785 (Version 1)
Quarter: 2021Q2

REPORT INFORMATION
  Report Type: Other
  Country: GB (occurrence: GB)
  Receive Date: 20210506
  Receipt Date: 20210506
  Transmission Date: 20210717
  Serious: Yes (Disabling, Other)
  Sender: FDA-Public Use
  Company Number: GB-CELLTRION INC.-2021GB005703

PATIENT

DRUGS (5)
  1. INFLIXIMAB (UNKNOWN) [Suspect]
     Active Substance: INFLIXIMAB
     Indication: NEUROSARCOIDOSIS
     Dosage: UNK
     Dates: start: 201912
  2. ASTRAZENECA COVID?19 VACCINE [Suspect]
     Active Substance: AZD-1222
     Indication: PRODUCT USED FOR UNKNOWN INDICATION
     Dosage: UNK (DOSE 1)
     Dates: start: 20210206
  3. ASTRAZENECA COVID?19 VACCINE [Suspect]
     Active Substance: AZD-1222
     Dosage: SECOND DOSE
     Dates: start: 20210423
  4. INFLIXIMAB (UNKNOWN) [Suspect]
     Active Substance: INFLIXIMAB
     Indication: NEUROPATHY PERIPHERAL
     Dosage: UNK
     Dates: start: 20210401
  5. INFLIXIMAB (UNKNOWN) [Suspect]
     Active Substance: INFLIXIMAB
     Dosage: UNK

REACTIONS (7)
  - Product use in unapproved indication [Unknown]
  - Neurosarcoidosis [Recovered/Resolved]
  - Neuropathy peripheral [Recovering/Resolving]
  - Disease recurrence [Recovering/Resolving]
  - Off label use [Unknown]
  - Immunodeficiency [Unknown]
  - Drug effective for unapproved indication [Unknown]

NARRATIVE: CASE EVENT DATE: 20210211
